FAERS Safety Report 7030489-3 (Version None)
Quarter: 2010Q4

REPORT INFORMATION
  Report Type: 
  Country: None (occurrence: None)
  Receive Date: 20101004
  Receipt Date: 20100917
  Transmission Date: 20110411
  Serious: Yes (Death, Other)
  Sender: FDA-Public Use
  Company Number: 2009003741

PATIENT
  Age: 80 Year
  Sex: Female
  Weight: 48.8 kg

DRUGS (8)
  1. ERLOTINIB HYDROCHLORIDE [Suspect]
     Indication: LUNG ADENOCARCINOMA
     Dosage: (150 MG, QD), ORAL
     Route: 048
     Dates: start: 20090126, end: 20090202
  2. FAMOTIDINE [Concomitant]
  3. AMLODIPINE BESYLATE [Concomitant]
  4. DASEN (SERRAPEPTASE) [Concomitant]
  5. SPIRONOLACTONE [Concomitant]
  6. BIOFERMIN (BIOFERMIN) [Concomitant]
  7. BETAMETHASONE [Concomitant]
  8. GLYCEROL 2.6% [Concomitant]

REACTIONS (9)
  - CYTOMEGALOVIRUS INFECTION [None]
  - FIBRIN D DIMER INCREASED [None]
  - HISTIOCYTOSIS HAEMATOPHAGIC [None]
  - LUNG ADENOCARCINOMA [None]
  - MALIGNANT NEOPLASM PROGRESSION [None]
  - MYELODYSPLASTIC SYNDROME [None]
  - PLATELET COUNT DECREASED [None]
  - PNEUMOCYSTIS JIROVECI PNEUMONIA [None]
  - WHITE BLOOD CELL COUNT DECREASED [None]
